FAERS Safety Report 7228572-2 (Version None)
Quarter: 2011Q1

REPORT INFORMATION
  Report Type: 
  Country: None (occurrence: None)
  Receive Date: 20110117
  Receipt Date: 20110105
  Transmission Date: 20110831
  Serious: No
  Sender: FDA-Public Use
  Company Number: US-BIOGENIDEC-2010BI015727

PATIENT
  Age: 51 Year
  Sex: Female

DRUGS (1)
  1. TYSABRI [Suspect]
     Indication: MULTIPLE SCLEROSIS
     Route: 042
     Dates: start: 20100305, end: 20100730

REACTIONS (10)
  - EYE PAIN [None]
  - EMOTIONAL DISORDER [None]
  - HEADACHE [None]
  - FATIGUE [None]
  - CRYING [None]
  - DISORIENTATION [None]
  - ASTHENIA [None]
  - COGNITIVE DISORDER [None]
  - MENTAL IMPAIRMENT [None]
  - MENTAL STATUS CHANGES [None]
